FAERS Safety Report 7751515-X (Version None)
Quarter: 2011Q3

REPORT INFORMATION
  Report Type: 
  Country: None (occurrence: None)
  Receive Date: 20110914
  Receipt Date: 20110907
  Transmission Date: 20111222
  Serious: Yes (Hospitalization)
  Sender: FDA-Public Use
  Company Number: PHEH2011US03594

PATIENT
  Age: 90 Year
  Sex: Female
  Weight: 56.689 kg

DRUGS (1)
  1. TOBI [Suspect]
     Dosage: 300 MG, TWICE DAILY FOR 28 DAYS ON AND 28 DAYS OFF
     Dates: start: 20101014

REACTIONS (1)
  - LUNG INFECTION [None]
